FAERS Safety Report 7551552-4 (Version None)
Quarter: 2011Q2

REPORT INFORMATION
  Report Type: 
  Country: None (occurrence: None)
  Receive Date: 20110616
  Receipt Date: 20110614
  Transmission Date: 20111010
  Serious: Yes (Death)
  Sender: FDA-Public Use
  Company Number: US-B.I. PHARMACEUTICALS,INC./RIDGEFIELD-2011-BP-15383BP

PATIENT
  Age: 69 Year
  Sex: Female

DRUGS (3)
  1. BETA BLOCKER [Concomitant]
     Indication: HYPERTENSION
  2. PRADAXA [Suspect]
     Indication: ATRIAL FIBRILLATION
     Dosage: 300 MG
     Route: 048
  3. CRESTOR [Concomitant]
     Indication: HYPERCHOLESTEROLAEMIA

REACTIONS (1)
  - VENTRICULAR TACHYCARDIA [None]
